FAERS Safety Report 11751931 (Version 8)
Quarter: 2018Q2

REPORT INFORMATION
  Report Type: Spontaneous
  Country: US (occurrence: US)
  Receive Date: 20151118
  Receipt Date: 20180514
  Transmission Date: 20180711
  Serious: Yes (Hospitalization, Other)
  Sender: FDA-Public Use
  Company Number: US-DSJP-DSU-2015-131854

PATIENT

DRUGS (2)
  1. BENICAR [Suspect]
     Active Substance: OLMESARTAN MEDOXOMIL
     Indication: PRODUCT USED FOR UNKNOWN INDICATION
     Dosage: UNK
     Route: 048
     Dates: start: 2002
  2. BENICAR HCT [Suspect]
     Active Substance: HYDROCHLOROTHIAZIDE\OLMESARTAN MEDOXOMIL
     Indication: HYPERTENSION
     Dosage: 40MG/25MG, QD
     Route: 048
     Dates: start: 2004

REACTIONS (16)
  - Abscess intestinal [Unknown]
  - Oesophagitis ulcerative [Unknown]
  - Oesophageal disorder [Unknown]
  - Dizziness [Recovered/Resolved]
  - Sprue-like enteropathy [Recovering/Resolving]
  - Large intestine polyp [Recovered/Resolved]
  - Inguinal hernia [Unknown]
  - Cholecystitis acute [Unknown]
  - Pancreatitis acute [Recovered/Resolved]
  - Gastrointestinal infection [Unknown]
  - Irritable bowel syndrome [Recovering/Resolving]
  - Acute kidney injury [Unknown]
  - Intestinal ulcer [Unknown]
  - Gastrooesophageal reflux disease [Recovered/Resolved]
  - Diverticulum [Recovered/Resolved]
  - Presyncope [Unknown]

NARRATIVE: CASE EVENT DATE: 2004
